FAERS Safety Report 21308973 (Version 1)
Quarter: 2022Q3

REPORT INFORMATION
  Report Type: Spontaneous
  Country: BR (occurrence: BR)
  Receive Date: 20220908
  Receipt Date: 20220908
  Transmission Date: 20221027
  Serious: Yes (Other)
  Sender: FDA-Public Use
  Company Number: BR-TAKEDA-2022TUS061674

PATIENT
  Sex: Female
  Weight: 54 kg

DRUGS (2)
  1. LISDEXAMFETAMINE DIMESYLATE [Suspect]
     Active Substance: LISDEXAMFETAMINE DIMESYLATE
     Indication: Attention deficit hyperactivity disorder
     Dosage: 1 DOSAGE FORM, 5/WEEK
     Route: 048
  2. LISDEXAMFETAMINE DIMESYLATE [Suspect]
     Active Substance: LISDEXAMFETAMINE DIMESYLATE
     Indication: Attention deficit hyperactivity disorder
     Dosage: 35 MILLIGRAM, 5/WEEK
     Route: 048

REACTIONS (9)
  - Bipolar disorder [Unknown]
  - Thyroid disorder [Unknown]
  - Therapy interrupted [Unknown]
  - Wrong technique in product usage process [Unknown]
  - Nervousness [Unknown]
  - Disturbance in attention [Unknown]
  - Anxiety [Unknown]
  - Drug ineffective [Unknown]
  - Insomnia [Unknown]
